FAERS Safety Report 9902498 (Version 1)
Quarter: 2014Q1

REPORT INFORMATION
  Report Type: Spontaneous
  Country: FR (occurrence: FR)
  Receive Date: 20140217
  Receipt Date: 20140217
  Transmission Date: 20141002
  Serious: Yes (Hospitalization)
  Sender: FDA-Public Use
  Company Number: FR-ASTRAZENECA-2014SE10084

PATIENT
  Age: 33306 Day
  Sex: Female

DRUGS (8)
  1. CRESTOR [Suspect]
     Indication: HYPERCHOLESTEROLAEMIA
     Route: 048
     Dates: start: 201311, end: 20140107
  2. RAMIPRIL [Suspect]
     Indication: ACUTE CORONARY SYNDROME
     Route: 048
     Dates: start: 201311, end: 20140107
  3. GLIMEPIRIDE [Suspect]
     Indication: TYPE 2 DIABETES MELLITUS
     Route: 048
     Dates: end: 20140107
  4. LASILIX [Suspect]
     Indication: ACUTE CORONARY SYNDROME
     Route: 048
     Dates: start: 201311, end: 20140107
  5. JANUVIA [Suspect]
     Indication: TYPE 2 DIABETES MELLITUS
     Route: 048
     Dates: end: 20140107
  6. ZOLPIDEM [Concomitant]
  7. DUOPLAVIN [Concomitant]
     Dates: start: 201311
  8. BISOPROLOL [Concomitant]
     Dates: start: 201311

REACTIONS (1)
  - Agranulocytosis [Recovered/Resolved]
